FAERS Safety Report 19710631 (Version 2)
Quarter: 2021Q3

REPORT INFORMATION
  Report Type: Spontaneous
  Country: JP (occurrence: JP)
  Receive Date: 20210817
  Receipt Date: 20210830
  Transmission Date: 20211014
  Serious: Yes (Hospitalization)
  Sender: FDA-Public Use
  Company Number: JP-ELI_LILLY_AND_COMPANY-JP202108004122

PATIENT
  Age: 50 Year
  Sex: Male

DRUGS (7)
  1. OLUMIANT [Suspect]
     Active Substance: BARICITINIB
     Indication: DERMATITIS ATOPIC
     Dosage: 2 MG, DAILY
     Route: 048
     Dates: start: 20210705, end: 20210803
  2. OLANZAPINE. [Concomitant]
     Active Substance: OLANZAPINE
  3. OLOPATADINE HYDROCHLORIDE. [Concomitant]
     Active Substance: OLOPATADINE HYDROCHLORIDE
  4. WYPAX [Concomitant]
     Active Substance: LORAZEPAM
  5. BLONANSERIN [Concomitant]
     Active Substance: BLONANSERIN
  6. SILECE [Concomitant]
     Active Substance: FLUNITRAZEPAM
  7. BELSOMRA [Concomitant]
     Active Substance: SUVOREXANT

REACTIONS (1)
  - Prostatitis [Recovered/Resolved]

NARRATIVE: CASE EVENT DATE: 20210802
